FAERS Safety Report 21331672 (Version 1)
Quarter: 2022Q3

REPORT INFORMATION
  Report Type: Spontaneous
  Country: US (occurrence: US)
  Receive Date: 20220914
  Receipt Date: 20220914
  Transmission Date: 20221027
  Serious: No
  Sender: FDA-Public Use
  Company Number: US-STRIDES ARCOLAB LIMITED-2022SP007478

PATIENT
  Sex: Male

DRUGS (1)
  1. MEGESTROL ACETATE [Suspect]
     Active Substance: MEGESTROL ACETATE
     Indication: Product used for unknown indication
     Dosage: UNK (MEGESTROL 40MG/ML SUSP)
     Route: 048
     Dates: start: 20220614

REACTIONS (2)
  - Hypoaesthesia [Unknown]
  - Hypoaesthesia [Unknown]
